FAERS Safety Report 6610879-0 (Version None)
Quarter: 2010Q1

REPORT INFORMATION
  Report Type: 
  Country: None (occurrence: None)
  Receive Date: 20100219
  Receipt Date: 20100203
  Transmission Date: 20100710
  Serious: Yes (Congenital Anomaly, Other)
  Sender: FDA-Public Use
  Company Number: 100212-0000184

PATIENT
  Sex: 0

DRUGS (2)
  1. VIGABATRIN (VIGABATRIN) [Suspect]
     Indication: DRUG EXPOSURE DURING PREGNANCY
     Dosage: 2000 MG;QD;TRPL
     Route: 064
  2. VALPROATE SODIUM [Suspect]
     Indication: DRUG EXPOSURE DURING PREGNANCY
     Dosage: 2000 MG;QD;TRPL
     Route: 064

REACTIONS (4)
  - CONGENITAL ANOMALY [None]
  - HYPOSPADIAS [None]
  - MATERNAL DRUGS AFFECTING FOETUS [None]
  - SPINA BIFIDA [None]
